FAERS Safety Report 11705224 (Version 1)
Quarter: 2015Q4

REPORT INFORMATION
  Report Type: Spontaneous
  Country: SE (occurrence: SE)
  Receive Date: 20151106
  Receipt Date: 20151106
  Transmission Date: 20160304
  Serious: Yes (Hospitalization)
  Sender: FDA-Public Use
  Company Number: SE-SA-2015SA170488

PATIENT
  Age: 32 Year
  Sex: Male
  Weight: 100 kg

DRUGS (7)
  1. STILNOCT [Suspect]
     Active Substance: ZOLPIDEM TARTRATE
     Indication: SLEEP DISORDER
     Dosage: FORM: FILMDEGRADED TABLET
     Route: 048
     Dates: start: 20020313
  2. PROMETHAZINE [Suspect]
     Active Substance: PROMETHAZINE\PROMETHAZINE HYDROCHLORIDE
     Indication: ANXIETY
     Dosage: FORM: FILM DEGRADED TABLET
     Route: 048
     Dates: start: 20020313
  3. VENLAFAXINE [Concomitant]
     Active Substance: VENLAFAXINE HYDROCHLORIDE
     Route: 065
  4. IMOVANE [Suspect]
     Active Substance: ZOPICLONE
     Indication: SLEEP DISORDER
     Route: 048
     Dates: start: 20020313
  5. STILNOCT [Suspect]
     Active Substance: ZOLPIDEM TARTRATE
     Indication: ANXIETY
     Dosage: FORM: FILMDEGRADED TABLET
     Route: 048
     Dates: start: 20020313
  6. IMOVANE [Suspect]
     Active Substance: ZOPICLONE
     Indication: ANXIETY
     Route: 048
     Dates: start: 20020313
  7. PROMETHAZINE [Suspect]
     Active Substance: PROMETHAZINE\PROMETHAZINE HYDROCHLORIDE
     Indication: SLEEP DISORDER
     Dosage: FORM: FILM DEGRADED TABLET
     Route: 048
     Dates: start: 20020313

REACTIONS (3)
  - Food craving [Not Recovered/Not Resolved]
  - Hunger [Not Recovered/Not Resolved]
  - Weight increased [Not Recovered/Not Resolved]

NARRATIVE: CASE EVENT DATE: 20030313
